FAERS Safety Report 10135957 (Version 1)
Quarter: 2014Q2

REPORT INFORMATION
  Report Type: Spontaneous
  Country: CA (occurrence: CA)
  Receive Date: 20140429
  Receipt Date: 20140429
  Transmission Date: 20141212
  Serious: Yes (Other)
  Sender: FDA-Public Use
  Company Number: CA-009507513-1404CAN013842

PATIENT
  Age: 55 Year
  Sex: Male

DRUGS (1)
  1. JANUVIA [Suspect]
     Indication: DIABETES MELLITUS
     Dosage: PATIENT HAS BEEN ON JANUVIA FOR 1 YEAR.
     Route: 048
     Dates: start: 2013

REACTIONS (1)
  - Thyroid cancer [Unknown]
